FAERS Safety Report 5642746-3 (Version None)
Quarter: 2008Q1

REPORT INFORMATION
  Report Type: 
  Country: None (occurrence: None)
  Receive Date: 20080227
  Receipt Date: 20080227
  Transmission Date: 20080703
  Serious: Yes (Hospitalization)
  Sender: FDA-Public Use
  Company Number: None

PATIENT
  Sex: Male
  Weight: 113.3993 kg

DRUGS (5)
  1. PLAVIX [Suspect]
     Indication: CORONARY ARTERY DISEASE
     Dosage: 75 MG PO QD (THERAPY DATES: PRIOR TO ADMISSION)
     Route: 048
  2. ASPIRIN [Suspect]
     Indication: CORONARY ARTERY DISEASE
     Dosage: 325MG PO QD (THERAPY DATES: PRIOR TO ADMISSION)
     Route: 048
  3. LIPITOR [Concomitant]
  4. TOPROL-XL [Concomitant]
  5. ACCUPRIL [Concomitant]

REACTIONS (4)
  - DIZZINESS [None]
  - FAECES DISCOLOURED [None]
  - GASTROINTESTINAL HAEMORRHAGE [None]
  - VOMITING [None]
